FAERS Safety Report 22226014 (Version 1)
Quarter: 2023Q2

REPORT INFORMATION
  Report Type: Other
  Country: GB (occurrence: GB)
  Receive Date: 20230419
  Receipt Date: 20230419
  Transmission Date: 20230721
  Serious: Yes (Other)
  Sender: FDA-Public Use
  Company Number: None

PATIENT
  Age: 44 Year
  Sex: Male
  Weight: 115 kg

DRUGS (1)
  1. COLCHICINE [Suspect]
     Active Substance: COLCHICINE
     Indication: Gout
     Dosage: 500 MCG, QID, TABLET
     Route: 065
     Dates: start: 20230322

REACTIONS (6)
  - Dyspepsia [Recovered/Resolved]
  - Dyspnoea [None]
  - Medication error [Unknown]
  - Diarrhoea [None]
  - Abdominal pain upper [None]
  - Overdose [Unknown]

NARRATIVE: CASE EVENT DATE: 20230322
